FAERS Safety Report 8529980-X (Version None)
Quarter: 2012Q3

REPORT INFORMATION
  Report Type: 
  Country: None (occurrence: None)
  Receive Date: 20120723
  Receipt Date: 20120712
  Transmission Date: 20120928
  Serious: Yes (Other)
  Sender: FDA-Public Use
  Company Number: DE-TEVA-348624GER

PATIENT
  Sex: Female
  Weight: 55 kg

DRUGS (8)
  1. MINOCYCLINE HCL [Interacting]
     Indication: ACNE
     Dates: start: 20120529
  2. ONDANSETRON [Concomitant]
     Dates: start: 20120514, end: 20120709
  3. DOXORUBICIN HCL [Interacting]
     Indication: BREAST CANCER
     Route: 042
     Dates: start: 20120514
  4. TAXOL [Interacting]
     Indication: BREAST CANCER
     Route: 042
     Dates: start: 20120514, end: 20120709
  5. EMEND [Concomitant]
     Dates: start: 20120514, end: 20120709
  6. CARBOPLATIN [Suspect]
     Indication: BREAST CANCER
     Route: 042
     Dates: start: 20120514, end: 20120709
  7. AVASTIN [Interacting]
     Indication: BREAST CANCER
     Route: 042
     Dates: start: 20120514
  8. DEXAMETHASONE SODIUM PHOSPHATE [Concomitant]
     Dates: start: 20120514, end: 20120709

REACTIONS (4)
  - DERMATITIS ALLERGIC [None]
  - ASTHENIA [None]
  - DRUG INTERACTION [None]
  - TACHYCARDIA [None]
